FAERS Safety Report 5530111-9 (Version None)
Quarter: 2007Q4

REPORT INFORMATION
  Report Type: 
  Country: None (occurrence: None)
  Receive Date: 20071130
  Receipt Date: 20071123
  Transmission Date: 20080405
  Serious: Yes (Other)
  Sender: FDA-Public Use
  Company Number: PHBS2007BR19824

PATIENT
  Age: 57 Year
  Sex: Male
  Weight: 75 kg

DRUGS (3)
  1. DIOVAN AMLO FIX [Suspect]
     Indication: HYPERTENSION
     Dosage: VALS 320 / AMLO 20 MG/DAY
     Route: 048
  2. DIOVAN AMLO FIX [Suspect]
     Dosage: VALS 160 / AMLO 10 MG/DAY
     Route: 048
  3. PREVENCOR [Concomitant]
     Indication: BLOOD CHOLESTEROL INCREASED
     Dosage: 20 MG, QD
     Route: 048

REACTIONS (7)
  - BLOOD PRESSURE INADEQUATELY CONTROLLED [None]
  - CATHETERISATION CARDIAC [None]
  - CHEST PAIN [None]
  - DRY MOUTH [None]
  - DYSPNOEA [None]
  - FEELING ABNORMAL [None]
  - ISCHAEMIA [None]
